FAERS Safety Report 9324610 (Version 2)
Quarter: 2013Q3

REPORT INFORMATION
  Report Type: Spontaneous
  Country: BR (occurrence: BR)
  Receive Date: 20130603
  Receipt Date: 20130827
  Transmission Date: 20140515
  Serious: Yes (Other)
  Sender: FDA-Public Use
  Company Number: PHHY2013BR054603

PATIENT
  Sex: Male

DRUGS (2)
  1. TEGRETOL [Suspect]
     Indication: EPILEPSY
     Dosage: 1 DF, QD
     Route: 048
  2. ZILEDON [Concomitant]
     Dosage: 1 DF, QD (AT NIGHT)
     Route: 048
     Dates: start: 201203

REACTIONS (3)
  - Dementia Alzheimer^s type [Unknown]
  - Malaise [Unknown]
  - Drug ineffective [Unknown]
